FAERS Safety Report 4333018-8 (Version None)
Quarter: 2004Q2

REPORT INFORMATION
  Report Type: 
  Country: None (occurrence: None)
  Receive Date: 20040401
  Receipt Date: 20040316
  Transmission Date: 20050107
  Serious: Yes (Other)
  Sender: FDA-Public Use
  Company Number: TOS-000619

PATIENT
  Age: 57 Year
  Sex: Male
  Weight: 68.5 kg

DRUGS (8)
  1. TOSITUMOMAB, IODINE I 131 TOSITUMOMAB(TOSITUMOMAB, IODINE I 131 TOSITU [Suspect]
     Indication: NON-HODGKIN'S LYMPHOMA
     Dosage: SEE IMAGE
     Route: 042
     Dates: start: 19950208, end: 19950208
  2. TOSITUMOMAB, IODINE I 131 TOSITUMOMAB(TOSITUMOMAB, IODINE I 131 TOSITU [Suspect]
     Indication: NON-HODGKIN'S LYMPHOMA
     Dosage: SEE IMAGE
     Route: 042
     Dates: start: 19950208, end: 19950208
  3. TOSITUMOMAB, IODINE I 131 TOSITUMOMAB(TOSITUMOMAB, IODINE I 131 TOSITU [Suspect]
     Indication: NON-HODGKIN'S LYMPHOMA
     Dosage: SEE IMAGE
     Route: 042
     Dates: start: 19950215, end: 19950215
  4. TOSITUMOMAB, IODINE I 131 TOSITUMOMAB(TOSITUMOMAB, IODINE I 131 TOSITU [Suspect]
     Indication: NON-HODGKIN'S LYMPHOMA
     Dosage: SEE IMAGE
     Route: 042
     Dates: start: 19950215, end: 19950215
  5. TOSITUMOMAB, IODINE I 131 TOSITUMOMAB(TOSITUMOMAB, IODINE I 131 TOSITU [Suspect]
     Indication: NON-HODGKIN'S LYMPHOMA
     Dosage: SEE IMAGE
     Route: 042
     Dates: start: 19960807, end: 19960807
  6. TOSITUMOMAB, IODINE I 131 TOSITUMOMAB(TOSITUMOMAB, IODINE I 131 TOSITU [Suspect]
     Indication: NON-HODGKIN'S LYMPHOMA
     Dosage: SEE IMAGE
     Route: 042
     Dates: start: 19960807, end: 19960807
  7. TOSITUMOMAB, IODINE I 131 TOSITUMOMAB(TOSITUMOMAB, IODINE I 131 TOSITU [Suspect]
     Indication: NON-HODGKIN'S LYMPHOMA
     Dosage: SEE IMAGE
     Route: 042
     Dates: start: 19960814, end: 19960814
  8. TOSITUMOMAB, IODINE I 131 TOSITUMOMAB(TOSITUMOMAB, IODINE I 131 TOSITU [Suspect]
     Indication: NON-HODGKIN'S LYMPHOMA
     Dosage: SEE IMAGE
     Route: 042
     Dates: start: 19960814, end: 19960814

REACTIONS (13)
  - BACK PAIN [None]
  - BLADDER CANCER [None]
  - CHROMOSOME ABNORMALITY [None]
  - DYSPEPSIA [None]
  - HAEMATURIA [None]
  - HAEMOGLOBIN DECREASED [None]
  - LYMPHADENOPATHY [None]
  - MALIGNANT NEOPLASM PROGRESSION [None]
  - MYELODYSPLASTIC SYNDROME [None]
  - NEOPLASM RECURRENCE [None]
  - NON-HODGKIN'S LYMPHOMA [None]
  - PYREXIA [None]
  - RED BLOOD CELL ABNORMALITY [None]
